FAERS Safety Report 17499789 (Version 1)
Quarter: 2020Q1

REPORT INFORMATION
  Report Type: Report from Study
  Country: None (occurrence: US)
  Receive Date: 20200304
  Receipt Date: 20200304
  Transmission Date: 20200409
  Serious: Yes (Other)
  Sender: FDA-Public Use
  Company Number: US-ABBVIE-20K-163-3299526-00

PATIENT
  Sex: Female

DRUGS (1)
  1. HUMIRA [Suspect]
     Active Substance: ADALIMUMAB
     Indication: CROHN^S DISEASE
     Route: 058

REACTIONS (9)
  - Colostomy [Unknown]
  - Blood magnesium decreased [Unknown]
  - Bone marrow disorder [Unknown]
  - Blood potassium decreased [Unknown]
  - Dehydration [Unknown]
  - Stoma site discharge [Unknown]
  - Blood iron decreased [Unknown]
  - Crohn^s disease [Unknown]
  - Stoma site haemorrhage [Unknown]
